FAERS Safety Report 19360862 (Version 1)
Quarter: 2021Q2

REPORT INFORMATION
  Report Type: Report from Study
  Country: None (occurrence: US)
  Receive Date: 20210602
  Receipt Date: 20210602
  Transmission Date: 20210717
  Serious: No
  Sender: FDA-Public Use
  Company Number: US-MDD US OPERATIONS-MDD202011-002284

PATIENT
  Age: 83 Year
  Sex: Male

DRUGS (1)
  1. APOKYN [Suspect]
     Active Substance: APOMORPHINE HYDROCHLORIDE
     Indication: ON AND OFF PHENOMENON
     Dosage: NOT PROVIDED

REACTIONS (9)
  - Confusional state [Unknown]
  - Inappropriate schedule of product administration [Unknown]
  - Condition aggravated [Unknown]
  - Hallucination [Unknown]
  - Therapy non-responder [Unknown]
  - Dementia [Unknown]
  - Depression [Unknown]
  - Insomnia [Unknown]
  - On and off phenomenon [Unknown]
